FAERS Safety Report 19950169 (Version 1)
Quarter: 2021Q4

REPORT INFORMATION
  Report Type: Report from Study
  Country: IT (occurrence: IT)
  Receive Date: 20211013
  Receipt Date: 20211013
  Transmission Date: 20220303
  Serious: Yes (Other)
  Sender: FDA-Public Use
  Company Number: None

PATIENT
  Age: 92 Year
  Sex: Female

DRUGS (9)
  1. CLOPIDOGREL [Suspect]
     Active Substance: CLOPIDOGREL BISULFATE
     Dates: start: 20210101, end: 20210917
  2. TEGRETOL [Concomitant]
     Active Substance: CARBAMAZEPINE
  3. PANTOPRAZOLE [Concomitant]
     Active Substance: PANTOPRAZOLE
  4. PERINDOPRIL [Concomitant]
     Active Substance: PERINDOPRIL
  5. PAROXETINE [Concomitant]
     Active Substance: PAROXETINE
  6. NEBIVOLOL [Concomitant]
     Active Substance: NEBIVOLOL
  7. ATORVASTATIN [Concomitant]
     Active Substance: ATORVASTATIN
  8. AMLODIPINE [Concomitant]
     Active Substance: AMLODIPINE BESYLATE
  9. FUROSEMIDE [Concomitant]
     Active Substance: FUROSEMIDE

REACTIONS (1)
  - Microcytic anaemia [Recovering/Resolving]

NARRATIVE: CASE EVENT DATE: 20210917
